FAERS Safety Report 8334320-5 (Version None)
Quarter: 2012Q2

REPORT INFORMATION
  Report Type: 
  Country: None (occurrence: None)
  Receive Date: 20120503
  Receipt Date: 20120502
  Transmission Date: 20120825
  Serious: No
  Sender: FDA-Public Use
  Company Number: US-TEVA-336258USA

PATIENT
  Sex: Female
  Weight: 55.388 kg

DRUGS (2)
  1. THYROID MEDICATION [Concomitant]
     Indication: THYROID DISORDER
  2. PLAN B ONE-STEP [Suspect]
     Indication: MENSTRUATION IRREGULAR
     Dosage: 1.5 MILLIGRAM;
     Route: 048
     Dates: start: 20120313, end: 20120313

REACTIONS (2)
  - MENSTRUATION DELAYED [None]
  - PREGNANCY [None]
